FAERS Safety Report 8550545-8 (Version None)
Quarter: 2012Q3

REPORT INFORMATION
  Report Type: 
  Country: None (occurrence: None)
  Receive Date: 20120730
  Receipt Date: 20110610
  Transmission Date: 20120928
  Serious: No
  Sender: FDA-Public Use
  Company Number: US-ALLERGAN-1107938US

PATIENT
  Age: 72 Year
  Sex: Female

DRUGS (2)
  1. OTC DRY EYE DROPS [Concomitant]
  2. LUMIGAN [Suspect]
     Indication: GLAUCOMA
     Dosage: 1 GTT, QHS
     Route: 047
     Dates: start: 20100101

REACTIONS (2)
  - OROPHARYNGEAL PAIN [None]
  - ORAL MUCOSAL EXFOLIATION [None]
